FAERS Safety Report 7400604-8 (Version None)
Quarter: 2011Q1

REPORT INFORMATION
  Report Type: 
  Country: None (occurrence: None)
  Receive Date: 20110329
  Receipt Date: 20110322
  Transmission Date: 20110831
  Serious: Yes (Hospitalization)
  Sender: FDA-Public Use
  Company Number: UTC-005649

PATIENT
  Age: 61 Year
  Sex: Female
  Weight: 100 kg

DRUGS (3)
  1. TYVASO [Suspect]
     Indication: PULMONARY HYPERTENSION
     Dosage: 1 (18 MCG,4 IN 1 D),INHALATION
     Route: 055
     Dates: start: 20100824
  2. DIURETICS (DIURETICS) [Concomitant]
  3. TRACLEER [Concomitant]

REACTIONS (2)
  - OXYGEN SATURATION DECREASED [None]
  - HEART RATE INCREASED [None]
